FAERS Safety Report 15593195 (Version 1)
Quarter: 2018Q4

REPORT INFORMATION
  Report Type: Spontaneous
  Country: FR (occurrence: FR)
  Receive Date: 20181107
  Receipt Date: 20181107
  Transmission Date: 20190205
  Serious: Yes (Hospitalization)
  Sender: FDA-Public Use
  Company Number: FR-TEVA-2018-FR-971854

PATIENT
  Age: 35 Year
  Sex: Male
  Weight: 60 kg

DRUGS (6)
  1. SOLUPRED [PREDNISOLONE METASULFOBENZOATE SODIUM] [Interacting]
     Active Substance: PREDNISOLONE SODIUM METAZOATE
     Indication: NON-HODGKIN^S LYMPHOMA
     Route: 048
     Dates: start: 20180803, end: 201808
  2. VINDESINE (SULFATE DE) [Interacting]
     Active Substance: VINDESINE
     Indication: NON-HODGKIN^S LYMPHOMA
     Route: 042
     Dates: start: 20180823, end: 20180911
  3. DOXORUBICINE [Suspect]
     Active Substance: DOXORUBICIN
     Indication: NON-HODGKIN^S LYMPHOMA
     Route: 042
     Dates: start: 20180803, end: 20180911
  4. TACROLIMUS MONOHYDRATE [Interacting]
     Active Substance: TACROLIMUS
     Indication: LIVER TRANSPLANT
     Dosage: .5 MILLIGRAM DAILY;
     Route: 048
     Dates: start: 2014
  5. MABTHERA [Interacting]
     Active Substance: RITUXIMAB
     Indication: NON-HODGKIN^S LYMPHOMA
     Route: 058
     Dates: start: 20180803, end: 20180911
  6. CYCLOPHOSPHAMIDE. [Interacting]
     Active Substance: CYCLOPHOSPHAMIDE
     Indication: NON-HODGKIN^S LYMPHOMA
     Route: 065
     Dates: start: 20180803, end: 20180911

REACTIONS (2)
  - Abdominal wall abscess [Recovering/Resolving]
  - Drug interaction [Recovering/Resolving]

NARRATIVE: CASE EVENT DATE: 20180916
